FAERS Safety Report 9193892 (Version 1)
Quarter: 2013Q1

REPORT INFORMATION
  Report Type: Spontaneous
  Country: US (occurrence: US)
  Receive Date: 20130327
  Receipt Date: 20130327
  Transmission Date: 20140127
  Serious: No
  Sender: FDA-Public Use
  Company Number: US-ASTRAZENECA-2013SE16033

PATIENT
  Age: 23 Year
  Sex: Male

DRUGS (4)
  1. SEROQUEL [Suspect]
     Indication: BIPOLAR II DISORDER
     Route: 048
     Dates: start: 2013, end: 2013
  2. DEPAKOTE [Suspect]
  3. XANAX [Concomitant]
  4. LITHIUM [Concomitant]

REACTIONS (2)
  - Incontinence [Unknown]
  - Enuresis [Unknown]
